FAERS Safety Report 11691263 (Version 1)
Quarter: 2015Q4

REPORT INFORMATION
  Report Type: Spontaneous
  Country: PT (occurrence: PT)
  Receive Date: 20151102
  Receipt Date: 20151102
  Transmission Date: 20160304
  Serious: Yes (Life-Threatening, Hospitalization, Other)
  Sender: FDA-Public Use
  Company Number: PT-BANPHARM-20154338

PATIENT
  Age: 16 Year
  Sex: Female

DRUGS (2)
  1. CARBAMAZEPINE. [Suspect]
     Active Substance: CARBAMAZEPINE
     Dosage: DF 16.4G,
     Route: 048
  2. VALPROIC ACID UNKNOWN PRODUCT [Suspect]
     Active Substance: VALPROIC ACID
     Dosage: DF 14.5G,
     Route: 048

REACTIONS (5)
  - Coma [Recovered/Resolved]
  - Toxicity to various agents [None]
  - Intentional overdose [Recovered/Resolved]
  - Pneumonia aspiration [Recovered/Resolved]
  - Suicide attempt [Recovered/Resolved]
